FAERS Safety Report 8587204 (Version 4)
Quarter: 2012Q4

REPORT INFORMATION
  Report Type: Report from Study
  Country: DE (occurrence: DE)
  Receive Date: 20120530
  Receipt Date: 20120907
  Transmission Date: 20130627
  Serious: Yes (Hospitalization)
  Sender: FDA-Public Use
  Company Number: DE-ROCHE-1068170

PATIENT
  Sex: Female

DRUGS (17)
  1. MABTHERA [Suspect]
     Indication: B-CELL LYMPHOMA
     Route: 042
     Dates: start: 20120425
  2. CYCLOPHOSPHAMIDE [Suspect]
     Indication: B-CELL LYMPHOMA
     Route: 042
     Dates: start: 20120426
  3. DOXORUBICIN [Suspect]
     Indication: B-CELL LYMPHOMA
     Route: 042
     Dates: start: 20120426
  4. VINCRISTINE [Suspect]
     Indication: B-CELL LYMPHOMA
     Route: 042
     Dates: start: 20120426
  5. PREDNISOLONE [Suspect]
     Indication: B-CELL LYMPHOMA
     Dosage: frequency 1 times in 2 week for 5 days
     Route: 065
     Dates: start: 20120426, end: 20120430
  6. NEULASTA [Suspect]
     Indication: B-CELL LYMPHOMA
     Dosage: daily dose 6 mg, 2 x(29 apr 2012+17 may 2012
     Route: 058
     Dates: start: 20120429
  7. ENOXAPARIN NATRIUM [Concomitant]
     Indication: ATRIAL FIBRILLATION
     Route: 058
     Dates: start: 20120412
  8. NEBIVOLOL [Concomitant]
     Indication: ATRIAL FIBRILLATION
     Route: 048
     Dates: start: 20120412
  9. LEVOTHYROXIN [Concomitant]
     Indication: HYPOTHYROIDISM
     Route: 048
     Dates: start: 20120412
  10. SIMVASTATIN [Concomitant]
     Indication: ARTERIOSCLEROSIS CORONARY ARTERY
     Route: 048
     Dates: start: 20120412
  11. TORASEMID [Concomitant]
     Indication: HYPERTENSION
     Route: 048
     Dates: start: 20120412
  12. ACETYLSALICYLIC ACID [Concomitant]
     Indication: ARTERIOSCLEROSIS CORONARY ARTERY
     Route: 048
     Dates: start: 20120412
  13. TIOTROPIUM BROMIDE [Concomitant]
     Indication: CHRONIC OBSTRUCTIVE PULMONARY DISEASE
     Route: 048
     Dates: start: 20120412
  14. RAMIPRIL [Concomitant]
     Indication: HYPERTENSION
     Route: 048
     Dates: start: 20120412
  15. TRIMETHOPRIM-SULFA [Concomitant]
     Indication: PROPHYLAXIS
     Route: 051
     Dates: start: 20120412
  16. ACICLOVIR [Concomitant]
     Indication: PROPHYLAXIS
     Route: 051
     Dates: start: 20120412
  17. PANTOPRAZOL [Concomitant]
     Indication: PROPHYLAXIS AGAINST GASTROINTESTINAL ULCER
     Route: 051
     Dates: start: 20120412

REACTIONS (2)
  - Thrombocytopenia [Unknown]
  - Presyncope [Recovered/Resolved]
